FAERS Safety Report 7430478-0 (Version None)
Quarter: 2011Q2

REPORT INFORMATION
  Report Type: 
  Country: None (occurrence: None)
  Receive Date: 20110421
  Receipt Date: 20100625
  Transmission Date: 20111010
  Serious: No
  Sender: FDA-Public Use
  Company Number: US-ASTRAZENECA-2010SE29887

PATIENT
  Age: 94 Year
  Sex: Female

DRUGS (4)
  1. CA [Concomitant]
  2. AMPICILLIN [Concomitant]
  3. TOPROL-XL [Suspect]
     Indication: CARDIAC FAILURE CONGESTIVE
     Route: 048
     Dates: start: 20100607
  4. LASIX [Concomitant]

REACTIONS (2)
  - URINE OUTPUT DECREASED [None]
  - SKIN DISCOLOURATION [None]
